FAERS Safety Report 9023547 (Version 1)
Quarter: 2013Q1

REPORT INFORMATION
  Report Type: Spontaneous
  Country: GB (occurrence: GB)
  Receive Date: 20130121
  Receipt Date: 20130121
  Transmission Date: 20140127
  Serious: Yes (Other)
  Sender: FDA-Public Use
  Company Number: PHFR2012GB006231

PATIENT
  Sex: Male

DRUGS (4)
  1. CLOZARIL [Suspect]
     Indication: SCHIZOPHRENIA
     Dosage: 625 MG, UNK
     Route: 048
     Dates: start: 20110616
  2. DEPAKOTE [Concomitant]
     Indication: AFFECTIVE DISORDER
     Dosage: 1750 MG, UNK
     Route: 048
  3. ATENOLOL [Concomitant]
     Indication: HEART RATE INCREASED
     Dosage: 50 MG, UNK
     Route: 048
  4. ADCAL D3 [Concomitant]
     Indication: VITAMIN D DEFICIENCY
     Dosage: 1 DF, UNK
     Route: 048

REACTIONS (5)
  - Nosocomial infection [Recovered/Resolved]
  - Heart rate increased [Unknown]
  - Diarrhoea [Recovered/Resolved]
  - Vomiting [Recovered/Resolved]
  - Pyrexia [Unknown]
